FAERS Safety Report 6767692-3 (Version None)
Quarter: 2010Q2

REPORT INFORMATION
  Report Type: 
  Country: None (occurrence: None)
  Receive Date: 20100614
  Receipt Date: 20100601
  Transmission Date: 20101027
  Serious: Yes (Hospitalization)
  Sender: FDA-Public Use
  Company Number: FR-ROCHE-656608

PATIENT
  Sex: Female
  Weight: 102 kg

DRUGS (6)
  1. TOCILIZUMAB [Suspect]
     Indication: RHEUMATOID ARTHRITIS
     Dosage: FORM: INFUSION BAG; LAST DOSE PRIOR TO EVENT ON 21 AUGUST 2009.
     Route: 042
     Dates: start: 20090520
  2. METHOTREXATE [Suspect]
     Indication: RHEUMATOID ARTHRITIS
     Dosage: DOSE BLINDED
     Route: 048
     Dates: start: 20090520
  3. SPECIAFOLDINE [Concomitant]
  4. PARACETAMOL [Concomitant]
  5. LEVOTHYROXINE SODIQUE [Concomitant]
  6. GINKGO BILOBA [Concomitant]

REACTIONS (2)
  - DIARRHOEA [None]
  - GASTROINTESTINAL EXAMINATION [None]
